FAERS Safety Report 17304893 (Version 1)
Quarter: 2020Q1

REPORT INFORMATION
  Report Type: Spontaneous
  Country: US (occurrence: US)
  Receive Date: 20200123
  Receipt Date: 20200123
  Transmission Date: 20200409
  Serious: No
  Sender: FDA-Public Use
  Company Number: US-PFIZER INC-2020030671

PATIENT
  Age: 89 Year
  Sex: Female
  Weight: 61.69 kg

DRUGS (2)
  1. ADVIL [Suspect]
     Active Substance: IBUPROFEN
     Indication: PAIN
     Dosage: 2 DF, 4X/DAY (2 INITIALLY AND THEN 1 EVERY 6 HOURS)
  2. ADVIL [Suspect]
     Active Substance: IBUPROFEN
     Dosage: 1 DF, 4X/DAY (2 INITIALLY AND THEN 1 EVERY 6 HOURS)

REACTIONS (1)
  - Constipation [Not Recovered/Not Resolved]

NARRATIVE: CASE EVENT DATE: 20200121
